FAERS Safety Report 6200349-6 (Version None)
Quarter: 2009Q2

REPORT INFORMATION
  Report Type: 
  Country: None (occurrence: None)
  Receive Date: 20090522
  Receipt Date: 20071031
  Transmission Date: 20091009
  Serious: No
  Sender: FDA-Public Use
  Company Number: US-ALEXION-A200700095

PATIENT
  Sex: Female

DRUGS (14)
  1. SOLIRIS [Suspect]
     Indication: PAROXYSMAL NOCTURNAL HAEMOGLOBINURIA
     Dosage: 600 MG, SINGLE
     Route: 042
     Dates: start: 20071001, end: 20071001
  2. SOLIRIS [Suspect]
     Dosage: 600 MG, SINGLE
     Route: 042
     Dates: start: 20071015, end: 20071015
  3. SOLIRIS [Suspect]
     Dosage: 600 MG, SINGLE
     Route: 042
     Dates: start: 20071022, end: 20071022
  4. SOLIRIS [Suspect]
     Dosage: 600 MG, SINGLE
     Route: 042
     Dates: start: 20071029, end: 20071029
  5. DESFERAL [Concomitant]
     Indication: IRON OVERLOAD
     Dosage: UNK, QD
     Route: 048
  6. PREDNISONE [Concomitant]
     Dosage: UNK, QD
     Route: 048
  7. PROCRIT                            /00909301/ [Concomitant]
     Dosage: UNK, QD
     Route: 048
  8. FOLIC ACID [Concomitant]
     Dosage: UNK, QD
     Route: 048
  9. ANTIHYPERTENSIVES [Concomitant]
     Indication: HYPERTENSION
     Dosage: UNK, QD
     Route: 048
  10. LISINOPRIL [Concomitant]
     Indication: HYPERTENSION
     Dosage: UNK, QD
     Route: 048
  11. VITAMIN E                          /00110501/ [Concomitant]
     Dosage: UNK, QD
     Route: 048
  12. FISH OIL [Concomitant]
     Dosage: UNK, QD
     Route: 048
  13. DUMENOPIDE [Concomitant]
  14. CHOLESTEROL- AND TRIGLYCERIDE REDUCERS [Concomitant]
     Indication: HYPERCHOLESTEROLAEMIA
     Dosage: UNK, QD
     Route: 048

REACTIONS (4)
  - DIZZINESS [None]
  - DRY MOUTH [None]
  - NAUSEA [None]
  - SINUS HEADACHE [None]
